FAERS Safety Report 7851335 (Version 7)
Quarter: 2013Q3

REPORT INFORMATION
  Report Type: Spontaneous
  Country: US (occurrence: US)
  Receive Date: 20110310
  Receipt Date: 20130930
  Transmission Date: 20140515
  Serious: Yes (Hospitalization, Disabling, Other)
  Sender: FDA-Public Use
  Company Number: US-MSD-1103USA00837

PATIENT
  Sex: Female
  Weight: 62.13 kg

DRUGS (15)
  1. FOSAMAX [Suspect]
     Indication: OSTEOPENIA
     Dosage: 70 MG, UNK
     Route: 048
     Dates: start: 200502, end: 200803
  2. FOSAMAX [Suspect]
     Indication: OSTEOPENIA
     Route: 048
     Dates: start: 200802
  3. FOSAMAX [Suspect]
     Indication: OSTEOPENIA
     Dosage: 70 MG, UNK
     Route: 048
     Dates: start: 200803, end: 201001
  4. CALCIUM (UNSPECIFIED) [Concomitant]
     Indication: OSTEOPENIA
     Dosage: 500 MG, QD
     Dates: start: 2007
  5. HORMONES (UNSPECIFIED) [Concomitant]
     Dates: start: 1990, end: 200904
  6. MAGNESIUM (UNSPECIFIED) [Concomitant]
     Dosage: 250 MG, QD
     Dates: start: 2007
  7. OMEGA-3 MARINE TRIGLYCERIDES [Concomitant]
     Dosage: 1200 MG, QD
     Dates: start: 2007
  8. MK-9278 [Concomitant]
     Dosage: UNK UNK, QD
     Dates: start: 2007
  9. LIPITOR [Concomitant]
     Dosage: 10 MG, QD
  10. ALENDRONATE SODIUM [Suspect]
     Dosage: 70 MG, UNK
     Dates: start: 20080820, end: 20091209
  11. HYDROCHLOROTHIAZIDE (+) LISINOPRIL [Concomitant]
  12. PREMPRO [Concomitant]
  13. CHONDROITIN SULFATE SODIUM (+) GLUCOSAMINE SULFATE [Concomitant]
  14. CHANTIX [Concomitant]
  15. ASPIRIN CALCIUM [Concomitant]

REACTIONS (46)
  - Open reduction of fracture [Unknown]
  - Modified radical mastectomy [Unknown]
  - Pelvic prolapse [Unknown]
  - Fracture [Unknown]
  - Low turnover osteopathy [Not Recovered/Not Resolved]
  - Breast cancer [Unknown]
  - Conductive deafness [Unknown]
  - Femur fracture [Recovered/Resolved]
  - Vitamin D deficiency [Unknown]
  - Adverse event [Unknown]
  - Bursitis [Unknown]
  - Chronic sinusitis [Unknown]
  - Dry eye [Unknown]
  - Otitis media acute [Recovered/Resolved]
  - Foreign body [Recovered/Resolved]
  - Cough [Unknown]
  - Reflux laryngitis [Unknown]
  - Herpes zoster [Unknown]
  - Post herpetic neuralgia [Unknown]
  - Goitre [Unknown]
  - Pyuria [Unknown]
  - Anxiety [Unknown]
  - Osteoarthritis [Unknown]
  - Renal cyst [Unknown]
  - Tympanic membrane perforation [Unknown]
  - Adverse drug reaction [Unknown]
  - Pulmonary mass [Unknown]
  - Synovial cyst [Unknown]
  - Cataract [Unknown]
  - Diverticulum [Unknown]
  - Vascular calcification [Unknown]
  - Gallbladder disorder [Unknown]
  - Thyroid neoplasm [Unknown]
  - Exostosis [Unknown]
  - Insomnia [Unknown]
  - Hypotension [Unknown]
  - Pleurectomy [Unknown]
  - Pneumothorax spontaneous [Unknown]
  - Palpitations [Unknown]
  - Back pain [Unknown]
  - Drug ineffective [Unknown]
  - Arthralgia [Unknown]
  - Arthralgia [Unknown]
  - Drug ineffective [Unknown]
  - Nausea [Unknown]
  - Constipation [Unknown]
